FAERS Safety Report 13672188 (Version 2)
Quarter: 2017Q3

REPORT INFORMATION
  Report Type: Spontaneous
  Country: US (occurrence: US)
  Receive Date: 20170621
  Receipt Date: 20170713
  Transmission Date: 20171127
  Serious: Yes (Death, Other)
  Sender: FDA-Public Use
  Company Number: US-PFIZER INC-2017243861

PATIENT
  Age: 75 Year
  Sex: Male
  Weight: 70.31 kg

DRUGS (5)
  1. OXYGEN. [Concomitant]
     Active Substance: OXYGEN
     Indication: OXYGEN THERAPY
     Dosage: UNK, AS NEEDED
     Dates: start: 2017
  2. PREDNISONE. [Concomitant]
     Active Substance: PREDNISONE
     Indication: RESPIRATION ABNORMAL
     Dosage: 5 MG, 1X/DAY
     Dates: start: 201701
  3. ONDANSETRON [Concomitant]
     Active Substance: ONDANSETRON
     Indication: ABDOMINAL DISCOMFORT
     Dosage: 4 MG, UNK
  4. INLYTA [Suspect]
     Active Substance: AXITINIB
     Indication: RENAL CANCER METASTATIC
     Dosage: 5 MG, 2X/DAY
     Route: 048
     Dates: start: 2014
  5. INLYTA [Suspect]
     Active Substance: AXITINIB
     Dosage: 5 MG, 1X/DAY
     Route: 048

REACTIONS (21)
  - Drug dose omission [Unknown]
  - Altered state of consciousness [Unknown]
  - Weight decreased [Unknown]
  - Intentional product use issue [Unknown]
  - Seizure [Unknown]
  - Suffocation feeling [Unknown]
  - Spinal fracture [Unknown]
  - Neoplasm progression [Unknown]
  - Fall [Recovering/Resolving]
  - Eye disorder [Unknown]
  - Vomiting [Unknown]
  - Tremor [Unknown]
  - Death [Fatal]
  - Depressed level of consciousness [Unknown]
  - Abdominal pain upper [Unknown]
  - Skin discolouration [Unknown]
  - Decreased appetite [Unknown]
  - Hypophagia [Unknown]
  - Asthenia [Unknown]
  - Eye movement disorder [Unknown]
  - Abnormal behaviour [Unknown]

NARRATIVE: CASE EVENT DATE: 20170526
